FAERS Safety Report 18789028 (Version 2)
Quarter: 2021Q2

REPORT INFORMATION
  Report Type: Spontaneous
  Country: US (occurrence: US)
  Receive Date: 20210126
  Receipt Date: 20210428
  Transmission Date: 20210717
  Serious: No
  Sender: FDA-Public Use
  Company Number: US-ULTRAGENYX PHARMACEUTICAL INC.-US-UGNX-20-00284

PATIENT
  Age: 4 Year
  Sex: Male
  Weight: 19 kg

DRUGS (2)
  1. DOJOLVI [Suspect]
     Active Substance: TRIHEPTANOIN
     Dates: start: 20200924
  2. DOJOLVI [Suspect]
     Active Substance: TRIHEPTANOIN
     Indication: VERY LONG-CHAIN ACYL-COENZYME A DEHYDROGENASE DEFICIENCY

REACTIONS (2)
  - Abdominal pain [Recovered/Resolved]
  - Diarrhoea [Recovered/Resolved]

NARRATIVE: CASE EVENT DATE: 20201228
